FAERS Safety Report 7267817-X (Version None)
Quarter: 2011Q1

REPORT INFORMATION
  Report Type: 
  Country: None (occurrence: None)
  Receive Date: 20110201
  Receipt Date: 20110125
  Transmission Date: 20110831
  Serious: Yes (Life-Threatening, Hospitalization)
  Sender: FDA-Public Use
  Company Number: B0691464A

PATIENT
  Sex: Female

DRUGS (5)
  1. ALKERAN [Suspect]
     Indication: MULTIPLE MYELOMA
     Dosage: 2MG CYCLIC
     Route: 048
     Dates: start: 20091229, end: 20101112
  2. ASPIRIN [Concomitant]
  3. SINTROM [Concomitant]
  4. THALIDOMIDE [Suspect]
     Indication: MULTIPLE MYELOMA
     Dosage: 100MG PER DAY
     Route: 048
     Dates: start: 20091229, end: 20101119
  5. SOLU-MEDROL [Concomitant]
     Dosage: 640MG PER DAY
     Route: 042
     Dates: start: 20091229, end: 20101112

REACTIONS (1)
  - THROMBOCYTOPENIA [None]
